FAERS Safety Report 4458043-8 (Version None)
Quarter: 2004Q3

REPORT INFORMATION
  Report Type: 
  Country: None (occurrence: None)
  Receive Date: 20040922
  Receipt Date: 20040914
  Transmission Date: 20050211
  Serious: Yes (Hospitalization)
  Sender: FDA-Public Use
  Company Number: HQWYE010214SEP04

PATIENT
  Age: 54 Year
  Sex: Female

DRUGS (7)
  1. CORDARONE [Suspect]
     Indication: ATRIAL FIBRILLATION
     Dosage: 150 MG 2X PER 1 DAY INTRAVENOUS
     Route: 042
     Dates: start: 20040719
  2. ESOMEPRAZOLE (ESOMEPRAZOLE,) [Suspect]
     Dosage: 1 UNIT ONCE DAILY ORAL
     Route: 048
  3. FLAGYL [Suspect]
     Dosage: 500 MG 4X PER 1 DAY
     Dates: start: 20040719, end: 20040808
  4. ORGARAN [Suspect]
     Indication: THROMBOCYTOPENIA
     Dosage: 12 UNITS THREE TIMES A DAY SC
     Route: 058
     Dates: start: 20040712
  5. CITALOPRAM HYDROBROMIDE [Suspect]
     Dosage: 30 MG 1X PER 1 DAY ORAL
     Route: 048
     Dates: start: 20040625, end: 20040810
  6. TIENAM (CILASTATIN/IMIPENEM,) [Suspect]
     Dosage: 500 MG 2X PER 1 DAY
     Dates: start: 20040719, end: 20040808
  7. ACTRAPID HUMAN (INSULIN HUMAN) [Concomitant]

REACTIONS (1)
  - RASH MACULO-PAPULAR [None]
